FAERS Safety Report 7912948-1 (Version None)
Quarter: 2011Q4

REPORT INFORMATION
  Report Type: 
  Country: None (occurrence: None)
  Receive Date: 20111114
  Receipt Date: 20111108
  Transmission Date: 20120403
  Serious: Yes (Hospitalization, Other)
  Sender: FDA-Public Use
  Company Number: FR-PFIZER INC-2011272553

PATIENT
  Age: 40 Year
  Sex: Female
  Weight: 75 kg

DRUGS (6)
  1. PREDNISONE [Concomitant]
     Dosage: 5 MG, 1X/DAY
     Route: 048
  2. PREDNISONE [Concomitant]
     Dosage: UNK
     Route: 048
  3. POLARAMINE [Concomitant]
     Dosage: 5 MG, SINGLE
     Route: 042
     Dates: start: 20111007, end: 20111007
  4. SOLU-MEDROL [Suspect]
     Dosage: 100 MG, 1X/DAY
     Route: 042
     Dates: start: 20111007, end: 20111007
  5. MABTHERA [Suspect]
     Dosage: 1 G, SINGLE
     Route: 042
     Dates: start: 20111007, end: 20111007
  6. METHOTREXATE SODIUM [Concomitant]
     Dosage: 20 MG, WEEKLY
     Route: 058
     Dates: start: 20110501

REACTIONS (5)
  - ELECTROCARDIOGRAM ST SEGMENT DEPRESSION [None]
  - ANGIOEDEMA [None]
  - BLOOD PRESSURE ABNORMAL [None]
  - HEART RATE INCREASED [None]
  - PHARYNGEAL ERYTHEMA [None]
